FAERS Safety Report 17942406 (Version 1)
Quarter: 2020Q2

REPORT INFORMATION
  Report Type: Spontaneous
  Country: US (occurrence: US)
  Receive Date: 20200625
  Receipt Date: 20200625
  Transmission Date: 20200714
  Serious: Yes (Other)
  Sender: FDA-Public Use
  Company Number: None

PATIENT
  Sex: Female

DRUGS (1)
  1. ALBUTEROL 1.25MG [Suspect]
     Active Substance: ALBUTEROL

REACTIONS (4)
  - Sleep disorder [None]
  - Heart rate increased [None]
  - Palpitations [None]
  - Feeling jittery [None]
